FAERS Safety Report 4999056-7 (Version None)
Quarter: 2006Q2

REPORT INFORMATION
  Report Type: 
  Country: None (occurrence: None)
  Receive Date: 20060509
  Receipt Date: 20060418
  Transmission Date: 20061013
  Serious: Yes (Death, Other)
  Sender: FDA-Public Use
  Company Number: US200604002858

PATIENT
  Age: 95 Year
  Sex: Female

DRUGS (2)
  1. FORTEO [Suspect]
  2. FORTEO PEN (FORTEO PEN) PEN, DISPOSABLE [Concomitant]

REACTIONS (2)
  - FALL [None]
  - HEAD INJURY [None]
